FAERS Safety Report 6938972-3 (Version None)
Quarter: 2010Q3

REPORT INFORMATION
  Report Type: 
  Country: None (occurrence: None)
  Receive Date: 20100824
  Receipt Date: 20100813
  Transmission Date: 20110219
  Serious: Yes (Hospitalization)
  Sender: FDA-Public Use
  Company Number: US-ELI_LILLY_AND_COMPANY-US201008003910

PATIENT
  Sex: Male

DRUGS (13)
  1. GEMCITABINE HCL [Suspect]
     Indication: TRANSITIONAL CELL CARCINOMA
     Dosage: 1520 MG, UNK
     Dates: start: 20100614
  2. GEMCITABINE HCL [Suspect]
     Dosage: 1512 MG, UNK
     Dates: start: 20100727
  3. PACLITAXEL [Suspect]
     Indication: TRANSITIONAL CELL CARCINOMA
     Dosage: 494 MG, UNK
     Dates: start: 20100614
  4. PACLITAXEL [Suspect]
     Dosage: 416 MG, UNK
     Dates: start: 20100720
  5. CARBOPLATIN [Suspect]
     Indication: TRANSITIONAL CELL CARCINOMA
     Dosage: 365 MG, UNK
     Dates: start: 20100614
  6. CARBOPLATIN [Suspect]
     Dosage: 292 MG, UNK
     Dates: start: 20100720
  7. ACETAMINOPHEN [Concomitant]
     Dosage: 325 MG, UNK
     Route: 048
  8. CALCIUM W/VITAMIN D NOS [Concomitant]
     Indication: VITAMIN SUPPLEMENTATION
     Route: 048
  9. GLUCOSAMINE COMPLEX [Concomitant]
     Dosage: 1200-1500 MG, UNK
     Route: 048
  10. SIMVASTATIN [Concomitant]
     Dosage: 40 MG, UNK
     Route: 048
  11. COMPAZINE [Concomitant]
     Indication: NAUSEA
     Route: 048
     Dates: start: 20100614
  12. ASPIRIN [Concomitant]
  13. OMEPRAZOLE [Concomitant]

REACTIONS (1)
  - GASTROINTESTINAL HAEMORRHAGE [None]
